FAERS Safety Report 20466754 (Version 1)
Quarter: 2022Q1

REPORT INFORMATION
  Report Type: Spontaneous
  Country: DE (occurrence: DE)
  Receive Date: 20220213
  Receipt Date: 20220213
  Transmission Date: 20220423
  Serious: Yes (Other)
  Sender: FDA-Public Use
  Company Number: DE-EMBRYOTOX-202000786

PATIENT
  Sex: Male
  Weight: 3.26 kg

DRUGS (11)
  1. QUETIAPINE [Suspect]
     Active Substance: QUETIAPINE
     Indication: Bipolar disorder
     Dosage: 100 MILLIGRAM, ONCE A DAY
     Route: 064
     Dates: start: 20191125, end: 20200811
  2. FLUVOXAMINE [Suspect]
     Active Substance: FLUVOXAMINE
     Indication: Depression
     Dosage: 300 MILLIGRAM, ONCE A DAY
     Route: 064
     Dates: start: 20191125, end: 20200811
  3. LITHIUM [Suspect]
     Active Substance: LITHIUM
     Indication: Bipolar disorder
     Dosage: UNK (900 [MG/D (BIS 675)])
     Route: 064
     Dates: start: 20191125, end: 20200811
  4. ESOMEPRAZOLE [Concomitant]
     Active Substance: ESOMEPRAZOLE
     Indication: Gastrooesophageal reflux disease
     Dosage: 40 MILLIGRAM, ONCE A DAY
     Route: 064
     Dates: start: 20191125, end: 20200811
  5. CARBAMAZEPINE [Concomitant]
     Active Substance: CARBAMAZEPINE
     Indication: Bipolar disorder
     Dosage: 200 MILLIGRAM, ONCE A DAY (REDUZIERT GERADE)
     Route: 064
     Dates: start: 20191125, end: 20200130
  6. BENSERAZIDE\LEVODOPA [Concomitant]
     Active Substance: BENSERAZIDE\LEVODOPA
     Indication: Restless legs syndrome
     Dosage: UNK (100 [MG/D ] / 25 [MG/D ])
     Route: 064
  7. HUMALOG [Concomitant]
     Active Substance: INSULIN LISPRO
     Indication: Gestational diabetes
     Dosage: UNK
     Route: 064
  8. EFEROX [Concomitant]
     Active Substance: LEVOTHYROXINE SODIUM
     Indication: Hypothyroidism
     Dosage: UNK (100 [?G/D (BIS 75) ])
     Route: 064
     Dates: start: 20191125, end: 20200811
  9. MEPERIDINE [Concomitant]
     Active Substance: MEPERIDINE
     Indication: Biliary colic
     Dosage: 50 MILLIGRAM, AS NECESSARY
     Route: 064
  10. MEPERIDINE [Concomitant]
     Active Substance: MEPERIDINE
     Indication: Cholelithiasis
  11. PIRITRAMIDE [Concomitant]
     Active Substance: PIRITRAMIDE
     Indication: Cholelithiasis
     Dosage: UNK (ONCE OR TWICE? AFTER THE 1ST TRIMESTER)
     Route: 064

REACTIONS (2)
  - Foetal exposure during pregnancy [Unknown]
  - Motor developmental delay [Unknown]
